FAERS Safety Report 9749145 (Version 2)
Quarter: 2013Q4

REPORT INFORMATION
  Report Type: Spontaneous
  Country: US (occurrence: US)
  Receive Date: 20131212
  Receipt Date: 20131213
  Transmission Date: 20140711
  Serious: No
  Sender: FDA-Public Use
  Company Number: US-TEVA-393515USA

PATIENT
  Sex: Female
  Weight: 66.28 kg

DRUGS (4)
  1. PARAGARD 380A [Suspect]
     Indication: CONTRACEPTION
     Route: 015
     Dates: start: 20130109, end: 20130205
  2. AMBIEN [Concomitant]
     Indication: INSOMNIA
  3. TRILEPTAL [Concomitant]
  4. IBUPROFEN [Concomitant]

REACTIONS (2)
  - Pelvic pain [Recovered/Resolved]
  - Metrorrhagia [Recovered/Resolved]
